FAERS Safety Report 16297166 (Version 1)
Quarter: 2019Q2

REPORT INFORMATION
  Report Type: Spontaneous
  Country: US (occurrence: US)
  Receive Date: 20190510
  Receipt Date: 20190510
  Transmission Date: 20190711
  Serious: Yes (Other)
  Sender: FDA-Public Use
  Company Number: US-MYLANLABS-2019M1043826

PATIENT
  Age: 19 Year
  Sex: Female

DRUGS (2)
  1. MERCAPTOPURINE. [Suspect]
     Active Substance: MERCAPTOPURINE
     Indication: T-CELL TYPE ACUTE LEUKAEMIA
     Route: 065
  2. BORTEZOMIB. [Concomitant]
     Active Substance: BORTEZOMIB
     Indication: T-CELL TYPE ACUTE LEUKAEMIA
     Route: 065

REACTIONS (1)
  - Pancreatitis relapsing [Unknown]
